FAERS Safety Report 6433446-0 (Version None)
Quarter: 2009Q4

REPORT INFORMATION
  Report Type: 
  Country: None (occurrence: None)
  Receive Date: 20091106
  Receipt Date: 20091106
  Transmission Date: 20100525
  Serious: Yes (Other)
  Sender: FDA-Public Use
  Company Number: None

PATIENT
  Sex: Female
  Weight: 86.3 kg

DRUGS (19)
  1. DAPTOMYCIN [Suspect]
     Indication: CELLULITIS
     Dosage: 340 MG Q24H IV BOLUS
     Route: 040
     Dates: start: 20091027, end: 20091102
  2. DAPTOMYCIN [Suspect]
     Indication: OSTEOMYELITIS
     Dosage: 340 MG Q24H IV BOLUS
     Route: 040
     Dates: start: 20091027, end: 20091102
  3. OXYCODONE HCL AND ACETAMINOPHEN [Concomitant]
  4. PYRIDOSTIGMINE BROMIDE [Concomitant]
  5. CERTIRIZINE [Concomitant]
  6. ZOLOFT [Concomitant]
  7. SIMVASTATIN [Concomitant]
  8. ESTRADIOL [Concomitant]
  9. TORSEMIDE [Concomitant]
  10. LASIX [Concomitant]
  11. LYRICA [Concomitant]
  12. AMRIX [Concomitant]
  13. ZYPREXA [Concomitant]
  14. ALPRAZOLAM [Concomitant]
  15. MORPHINE [Concomitant]
  16. METFORMIN [Concomitant]
  17. SUCRALFATE [Concomitant]
  18. TRAZODONE HCL [Concomitant]
  19. CIPRO [Concomitant]

REACTIONS (2)
  - FALL [None]
  - RHABDOMYOLYSIS [None]
